FAERS Safety Report 5223670-7 (Version None)
Quarter: 2007Q1

REPORT INFORMATION
  Report Type: 
  Country: None (occurrence: None)
  Receive Date: 20070125
  Receipt Date: 20070115
  Transmission Date: 20070707
  Serious: Yes (Life-Threatening, Hospitalization)
  Sender: FDA-Public Use
  Company Number: GBWYE166015JAN07

PATIENT
  Age: 64 Year
  Sex: Female

DRUGS (7)
  1. IBUPROFEN [Suspect]
  2. ADCAL D3 (CALCIUM CARBONATE/COLECALCIFEROL) [Concomitant]
  3. BUMETANIDE [Concomitant]
  4. CO-CODAMOL (CODEINE PHOSPHATE/PARACETAMOL) [Concomitant]
  5. ETHINYLESTRADIOL W/NORETHINDRONE (ETHINYLESTRADIOL/NORETHISTERONE) [Concomitant]
  6. AMOXICILLIN [Suspect]
     Indication: LOWER RESPIRATORY TRACT INFECTION
     Dosage: 500 MG 3X PER 1 DAY
     Route: 048
     Dates: start: 20060308, end: 20060312
  7. NAPROXEN [Suspect]
     Indication: ARTHRALGIA
     Dosage: 250 MG 3X PER 1 DAY
     Route: 048
     Dates: start: 20051004

REACTIONS (2)
  - ENCEPHALITIS [None]
  - HEPATIC NECROSIS [None]
